FAERS Safety Report 20860678 (Version 2)
Quarter: 2022Q2

REPORT INFORMATION
  Report Type: Report from Study
  Country: US (occurrence: US)
  Receive Date: 20220523
  Receipt Date: 20220622
  Transmission Date: 20220721
  Serious: Yes (Other)
  Sender: FDA-Public Use
  Company Number: US-EXELIXIS-CABO-22052064

PATIENT
  Sex: Male
  Weight: 104 kg

DRUGS (17)
  1. CABOMETYX [Suspect]
     Active Substance: CABOZANTINIB S-MALATE
     Indication: Renal cell carcinoma
     Dosage: 40 MG, QD
     Route: 048
     Dates: start: 20220304
  2. CABOMETYX [Suspect]
     Active Substance: CABOZANTINIB S-MALATE
     Dosage: 40 MG, 5 DAYS/WEEK, AND NO WEEKENDS
     Route: 048
  3. CABOMETYX [Suspect]
     Active Substance: CABOZANTINIB S-MALATE
     Dosage: 40 MG, QD
     Route: 048
     Dates: end: 20220503
  4. CABOMETYX [Suspect]
     Active Substance: CABOZANTINIB S-MALATE
     Dosage: 40 MG, QD
     Route: 048
     Dates: start: 202205, end: 20220512
  5. CABOMETYX [Suspect]
     Active Substance: CABOZANTINIB S-MALATE
     Dosage: 40 MG, QD
     Route: 048
     Dates: start: 20220610
  6. SYNTHROID [Concomitant]
     Active Substance: LEVOTHYROXINE SODIUM
  7. DULOXETINE [Concomitant]
     Active Substance: DULOXETINE
  8. AMLODIPINE BESYLATE [Concomitant]
     Active Substance: AMLODIPINE BESYLATE
  9. METOPROLOL SUCCINATE [Concomitant]
     Active Substance: METOPROLOL SUCCINATE
  10. ATORVASTATIN CALCIUM [Concomitant]
     Active Substance: ATORVASTATIN CALCIUM
  11. EUTHYROX [Concomitant]
     Active Substance: LEVOTHYROXINE SODIUM
  12. CIPRO [Concomitant]
     Active Substance: CIPROFLOXACIN HYDROCHLORIDE
  13. VENTOLIN HFA [Concomitant]
     Active Substance: ALBUTEROL SULFATE
  14. Symbicort HFA [Concomitant]
  15. VITAMIN D [Concomitant]
     Active Substance: VITAMIN D NOS
  16. VITAMINS [Concomitant]
     Active Substance: VITAMINS
  17. FENOFIBRATE [Concomitant]
     Active Substance: FENOFIBRATE

REACTIONS (8)
  - Hyperpyrexia [Unknown]
  - Syncope [Unknown]
  - Blood magnesium decreased [Unknown]
  - Dizziness [Unknown]
  - Lung neoplasm [Recovered/Resolved]
  - Gingival pain [Unknown]
  - Hyperkeratosis [Unknown]
  - Inappropriate schedule of product administration [Unknown]
